FAERS Safety Report 7822349-2 (Version None)
Quarter: 2011Q4

REPORT INFORMATION
  Report Type: 
  Country: None (occurrence: None)
  Receive Date: 20111018
  Receipt Date: 20111007
  Transmission Date: 20120403
  Serious: Yes (Disabling, Other)
  Sender: FDA-Public Use
  Company Number: US-ELI_LILLY_AND_COMPANY-US201110002753

PATIENT
  Sex: Male

DRUGS (3)
  1. HUMULIN 70/30 [Suspect]
  2. HUMULIN 70/30 [Suspect]
     Indication: DIABETES MELLITUS
     Dosage: 15 U, EACH MORNING
  3. HUMULIN 70/30 [Suspect]
     Dosage: 10 U, EACH EVENING

REACTIONS (7)
  - DRUG DOSE OMISSION [None]
  - PAIN [None]
  - ASTHENIA [None]
  - MEMORY IMPAIRMENT [None]
  - HYPOACUSIS [None]
  - CONFUSIONAL STATE [None]
  - BLINDNESS [None]
